FAERS Safety Report 24614287 (Version 4)
Quarter: 2025Q3

REPORT INFORMATION
  Report Type: Report from Study
  Country: US (occurrence: US)
  Receive Date: 20241113
  Receipt Date: 20250910
  Transmission Date: 20251021
  Serious: No
  Sender: SUNOVION
  Company Number: US-SUMITOMO PHARMA SWITZERLAND GMBH-2024SPA004928

PATIENT
  Age: 52 Year
  Sex: Male

DRUGS (1)
  1. ORGOVYX [Suspect]
     Active Substance: RELUGOLIX
     Indication: Prostate cancer
     Dosage: 120 MG, QD
     Route: 048
     Dates: start: 20241023

REACTIONS (8)
  - Heart rate abnormal [Unknown]
  - Pyrexia [Recovering/Resolving]
  - Pain [Unknown]
  - Brain fog [Unknown]
  - Dizziness [Recovered/Resolved]
  - Depression [Unknown]
  - Fatigue [Unknown]
  - Incorrect dose administered [Unknown]
